FAERS Safety Report 23217613 (Version 1)
Quarter: 2023Q4

REPORT INFORMATION
  Report Type: Spontaneous
  Country: US (occurrence: US)
  Receive Date: 20231122
  Receipt Date: 20231122
  Transmission Date: 20240110
  Serious: Yes (Other)
  Sender: FDA-Public Use
  Company Number: US-PFIZER INC-202300376564

PATIENT
  Age: 69 Year
  Sex: Female

DRUGS (1)
  1. XELJANZ [Suspect]
     Active Substance: TOFACITINIB CITRATE
     Dosage: 5 MG
     Route: 048

REACTIONS (7)
  - Diabetes mellitus [Unknown]
  - Pain [Unknown]
  - Gait disturbance [Unknown]
  - Dysstasia [Unknown]
  - Coronavirus infection [Recovered/Resolved]
  - Arthralgia [Unknown]
  - Cardiac disorder [Unknown]
